FAERS Safety Report 8953928 (Version 2)
Quarter: 2013Q1

REPORT INFORMATION
  Report Type: Report from Study
  Country: DE (occurrence: DE)
  Receive Date: 20121206
  Receipt Date: 20130306
  Transmission Date: 20140127
  Serious: Yes (Death)
  Sender: FDA-Public Use
  Company Number: DE-ACTELION-A-US2012-75871

PATIENT
  Age: 66 Year
  Sex: Male

DRUGS (14)
  1. VENTAVIS [Suspect]
     Indication: PULMONARY HYPERTENSION
     Dosage: 5 MCG, QID
     Route: 055
     Dates: start: 20120823, end: 20120906
  2. VENTAVIS [Suspect]
     Dosage: 5 UNK, UNK
     Route: 055
     Dates: start: 20120813, end: 20120817
  3. VENTAVIS [Suspect]
     Dosage: 2.5 MCG, UNK
     Route: 055
     Dates: start: 20121011, end: 20121015
  4. REVATIO [Concomitant]
     Dosage: 20 MG, UNK
  5. VOLIBRIS [Concomitant]
  6. ASS [Concomitant]
  7. PROCORALAN [Concomitant]
  8. ENAHEXAL [Concomitant]
  9. XIPAMID [Concomitant]
  10. ALDACTONE [Concomitant]
  11. FLUVASTATIN [Concomitant]
  12. PANTOZOL [Concomitant]
  13. THYRONAJOD [Concomitant]
  14. TILIDIN [Concomitant]

REACTIONS (4)
  - Pulmonary hypertension [Fatal]
  - Drug intolerance [Unknown]
  - Nausea [Unknown]
  - Dyspnoea [Unknown]
